FAERS Safety Report 11929953 (Version 2)
Quarter: 2016Q1

REPORT INFORMATION
  Report Type: Spontaneous
  Country: US (occurrence: US)
  Receive Date: 20160120
  Receipt Date: 20160310
  Transmission Date: 20160526
  Serious: Yes (Hospitalization, Other)
  Sender: FDA-Public Use
  Company Number: US-ACORDA-ACO_117263_2015

PATIENT
  Age: 74 Year
  Sex: Female

DRUGS (1)
  1. AMPYRA [Suspect]
     Active Substance: DALFAMPRIDINE
     Indication: MULTIPLE SCLEROSIS
     Dosage: 10 MG, BID
     Route: 048
     Dates: start: 20140412

REACTIONS (11)
  - Cataract [Recovered/Resolved]
  - Back injury [Recovering/Resolving]
  - Inflammation [Unknown]
  - Tremor [Recovering/Resolving]
  - Flushing [Unknown]
  - Pneumonia [Unknown]
  - Costochondritis [Unknown]
  - Nerve compression [Recovering/Resolving]
  - Pulmonary mass [Recovered/Resolved]
  - Costochondritis [Recovering/Resolving]
  - Walking aid user [Recovering/Resolving]

NARRATIVE: CASE EVENT DATE: 201412
